FAERS Safety Report 9459047 (Version 4)
Quarter: 2013Q3

REPORT INFORMATION
  Report Type: Spontaneous
  Country: US (occurrence: US)
  Receive Date: 20130814
  Receipt Date: 20130915
  Transmission Date: 20140515
  Serious: No
  Sender: FDA-Public Use
  Company Number: US-009507513-1308USA006307

PATIENT
  Sex: Female

DRUGS (2)
  1. MIRALAX [Suspect]
     Indication: CONSTIPATION
     Dosage: 8.5 G, QD
     Route: 048
  2. MIRALAX [Suspect]
     Indication: MEDICAL OBSERVATION
     Dosage: 17 G, QD
     Route: 048

REACTIONS (3)
  - Prescribed underdose [Unknown]
  - Drug ineffective [Unknown]
  - Drug effect delayed [Unknown]
